FAERS Safety Report 4672502-4 (Version None)
Quarter: 2005Q2

REPORT INFORMATION
  Report Type: 
  Country: None (occurrence: None)
  Receive Date: 20050524
  Receipt Date: 20050428
  Transmission Date: 20051028
  Serious: Yes (Hospitalization)
  Sender: FDA-Public Use
  Company Number: 200511492FR

PATIENT
  Age: 66 Year
  Sex: Male
  Weight: 85 kg

DRUGS (8)
  1. FLAGYL [Suspect]
     Route: 042
     Dates: start: 20050220, end: 20050223
  2. TARGOCID [Suspect]
     Route: 042
     Dates: start: 20050209, end: 20050222
  3. LOVENOX [Suspect]
     Route: 058
     Dates: start: 20050219, end: 20050221
  4. INNOHEP [Suspect]
     Route: 058
     Dates: start: 20050221, end: 20050222
  5. LASILIX [Concomitant]
     Route: 042
     Dates: start: 20050222, end: 20050227
  6. AUGMENTIN '125' [Concomitant]
     Indication: STAPHYLOCOCCAL INFECTION
  7. NETROMYCIN [Concomitant]
     Indication: STAPHYLOCOCCAL INFECTION
  8. FOSFOMYCINE [Concomitant]
     Indication: STAPHYLOCOCCAL INFECTION

REACTIONS (4)
  - EPISTAXIS [None]
  - HAEMOPTYSIS [None]
  - PURPURA [None]
  - THROMBOCYTOPENIA [None]
